FAERS Safety Report 9798616 (Version 2)
Quarter: 2014Q1

REPORT INFORMATION
  Report Type: Spontaneous
  Country: US (occurrence: US)
  Receive Date: 20140106
  Receipt Date: 20140128
  Transmission Date: 20141002
  Serious: No
  Sender: FDA-Public Use
  Company Number: US-PFIZER INC-2014002183

PATIENT
  Age: 61 Year
  Sex: Female

DRUGS (11)
  1. ZOLOFT [Suspect]
     Dosage: 50 MG ? TAB DAILY
     Route: 048
     Dates: start: 20131201, end: 20131217
  2. AMLODIPINE BESILATE [Suspect]
     Dosage: 5 MG, DAILY
     Route: 048
     Dates: start: 20101008, end: 20101013
  3. LISINOPRIL [Suspect]
     Dosage: 5 MG, UNK
     Route: 048
     Dates: start: 20090610, end: 200906
  4. LISINOPRIL [Suspect]
     Dosage: 20 MG, UNK
     Dates: start: 200906, end: 20090619
  5. TRAMADOL [Suspect]
     Dosage: 50 MG, ? TO 1 TAB FOUR TIMES DAILY PRN
     Route: 048
     Dates: start: 20100218, end: 20110207
  6. AMITRIPTYLINE [Suspect]
     Dosage: 10 MG, DAILY
     Route: 048
     Dates: start: 20110819, end: 20110909
  7. CEPHALEXIN [Suspect]
     Dosage: UNK
  8. CYMBALTA [Suspect]
     Dosage: 30 MG, DAILY
     Route: 048
     Dates: start: 20131022, end: 20131217
  9. GLYBURIDE [Suspect]
     Dosage: UNK
     Dates: start: 20090126, end: 20090128
  10. HUMALOG [Suspect]
     Dosage: UNK
     Dates: end: 20090520
  11. BYETTA [Suspect]
     Dosage: UNK
     Route: 058
     Dates: end: 20090403

REACTIONS (6)
  - Drug hypersensitivity [Unknown]
  - Urticaria [Recovered/Resolved]
  - Swelling [Recovered/Resolved]
  - Stomatitis [Recovered/Resolved]
  - Palpitations [Recovered/Resolved]
  - Hypoaesthesia [Recovered/Resolved]
